FAERS Safety Report 6845024-X (Version None)
Quarter: 2010Q3

REPORT INFORMATION
  Report Type: 
  Country: None (occurrence: None)
  Receive Date: 20100715
  Receipt Date: 20100707
  Transmission Date: 20110219
  Serious: Yes (Hospitalization)
  Sender: FDA-Public Use
  Company Number: BR-BAXTER-2010BH018860

PATIENT
  Sex: Male

DRUGS (1)
  1. DIANEAL [Suspect]
     Indication: PERITONEAL DIALYSIS
     Route: 033

REACTIONS (9)
  - AMNESIA [None]
  - FALL [None]
  - FLUID RETENTION [None]
  - HYPERTENSION [None]
  - INJURY [None]
  - LUNG DISORDER [None]
  - MALAISE [None]
  - PLEURAL EFFUSION [None]
  - TREMOR [None]
